FAERS Safety Report 17871553 (Version 1)
Quarter: 2020Q2

REPORT INFORMATION
  Report Type: Spontaneous
  Country: JP (occurrence: JP)
  Receive Date: 20200608
  Receipt Date: 20200608
  Transmission Date: 20200714
  Serious: Yes (Hospitalization)
  Sender: FDA-Public Use
  Company Number: JP-GILEAD-2020-0470088

PATIENT
  Age: 61 Year
  Sex: Female
  Weight: 74 kg

DRUGS (2)
  1. VEMLIDY [Suspect]
     Active Substance: TENOFOVIR ALAFENAMIDE FUMARATE
     Indication: HEPATITIS B
     Dosage: UNK UNK, QD
     Route: 048
     Dates: start: 20170407
  2. VEMLIDY [Suspect]
     Active Substance: TENOFOVIR ALAFENAMIDE FUMARATE
     Dosage: UNK, QOD
     Route: 048
     Dates: start: 2018

REACTIONS (3)
  - Renal impairment [Unknown]
  - Cardiovascular disorder [Unknown]
  - Off label use [Unknown]

NARRATIVE: CASE EVENT DATE: 2018
